FAERS Safety Report 7884299-5 (Version None)
Quarter: 2011Q4

REPORT INFORMATION
  Report Type: 
  Country: None (occurrence: None)
  Receive Date: 20111102
  Receipt Date: 20111019
  Transmission Date: 20120403
  Serious: Yes (Hospitalization)
  Sender: FDA-Public Use
  Company Number: US-ELI_LILLY_AND_COMPANY-US201109004165

PATIENT
  Sex: Female

DRUGS (8)
  1. SPIRONOLACTONE [Concomitant]
     Dosage: UNK, QD
  2. FORTEO [Suspect]
     Dosage: 20 UG, QD
     Dates: end: 20110101
  3. CALCIUM [Concomitant]
     Dosage: 1800 MG, QD
  4. AMBIEN [Concomitant]
     Dosage: UNK, PRN
  5. FORTEO [Suspect]
     Indication: OSTEOPOROSIS
     Dosage: 20 UG, QD
     Route: 065
     Dates: start: 20110101
  6. NADOLOL [Concomitant]
     Dosage: UNK, QD
  7. NEXIUM [Concomitant]
     Indication: GASTRIC DISORDER
     Dosage: UNK, QD
  8. VITAMIN TAB [Concomitant]
     Dosage: UNK, QD

REACTIONS (6)
  - MUSCULOSKELETAL DISCOMFORT [None]
  - ARTHRALGIA [None]
  - BACK PAIN [None]
  - LIMB DISCOMFORT [None]
  - THORACIC VERTEBRAL FRACTURE [None]
  - HEART RATE INCREASED [None]
